FAERS Safety Report 6845473-X (Version None)
Quarter: 2010Q3

REPORT INFORMATION
  Report Type: 
  Country: None (occurrence: None)
  Receive Date: 20100715
  Receipt Date: 20071003
  Transmission Date: 20110219
  Serious: No
  Sender: FDA-Public Use
  Company Number: US-PFIZER INC-2007070697

PATIENT
  Sex: Male
  Weight: 77.6 kg

DRUGS (12)
  1. CHANTIX [Suspect]
     Indication: SMOKING CESSATION THERAPY
     Dates: start: 20070810
  2. LEXAPRO [Concomitant]
  3. TEMAZEPAM [Concomitant]
  4. METHADONE HCL [Concomitant]
  5. HYDROCODONE [Concomitant]
  6. LYRICA [Concomitant]
  7. METHYLPREDNISOLONE [Concomitant]
     Indication: ASTHMA
     Dates: end: 20070101
  8. METHYLPREDNISOLONE [Concomitant]
     Indication: PULMONARY CONGESTION
  9. ANTIBIOTICS [Concomitant]
     Indication: ASTHMA
     Dates: end: 20070101
  10. NIACIN [Concomitant]
  11. PROTONIX [Concomitant]
  12. DRUG, UNSPECIFIED [Concomitant]

REACTIONS (3)
  - DRUG INEFFECTIVE [None]
  - LIMB INJURY [None]
  - NAUSEA [None]
